FAERS Safety Report 4778780-5 (Version None)
Quarter: 2005Q3

REPORT INFORMATION
  Report Type: 
  Country: None (occurrence: None)
  Receive Date: 20050926
  Receipt Date: 20050914
  Transmission Date: 20060218
  Serious: Yes (Life-Threatening, Hospitalization)
  Sender: FDA-Public Use
  Company Number: DK-GLAXOSMITHKLINE-B0394275A

PATIENT
  Age: 55 Year
  Sex: Female

DRUGS (1)
  1. PANODIL BRUS [Suspect]

REACTIONS (7)
  - BLOOD PRESSURE DECREASED [None]
  - ERYTHEMA [None]
  - GENERALISED ERYTHEMA [None]
  - PAIN IN EXTREMITY [None]
  - PRURITUS GENERALISED [None]
  - SENSATION OF HEAVINESS [None]
  - SYNCOPE [None]
